FAERS Safety Report 8314395-X (Version None)
Quarter: 2012Q2

REPORT INFORMATION
  Report Type: 
  Country: None (occurrence: None)
  Receive Date: 20120426
  Receipt Date: 20120403
  Transmission Date: 20120825
  Serious: Yes (Other)
  Sender: FDA-Public Use
  Company Number: TR-ROCHE-1057479

PATIENT

DRUGS (1)
  1. XELODA [Suspect]
     Indication: BREAST CANCER
     Dosage: 500 MG 2+2
     Route: 048
     Dates: start: 20110526, end: 20120319

REACTIONS (1)
  - INTESTINAL OBSTRUCTION [None]
